FAERS Safety Report 9369964 (Version 2)
Quarter: 2013Q3

REPORT INFORMATION
  Report Type: Report from Study
  Country: CA (occurrence: CA)
  Receive Date: 20130626
  Receipt Date: 20130708
  Transmission Date: 20140515
  Serious: Yes (Other)
  Sender: FDA-Public Use
  Company Number: CA-JNJFOC-20130613287

PATIENT
  Sex: Female
  Weight: 63.5 kg

DRUGS (12)
  1. REMICADE [Suspect]
     Indication: CROHN^S DISEASE
     Route: 042
     Dates: start: 201007
  2. ACCUPRIL [Concomitant]
     Route: 065
  3. FOLIC ACID [Concomitant]
     Route: 065
  4. HYDROCHLOROTHIAZIDE [Concomitant]
     Route: 065
  5. PENTASA [Concomitant]
     Route: 065
  6. IMURAN [Concomitant]
     Route: 065
  7. HYDROXYZINE [Concomitant]
     Route: 065
  8. NORVASC [Concomitant]
     Route: 065
  9. PARIET [Concomitant]
     Route: 065
  10. NU-DOXYCYCLINE [Concomitant]
     Route: 065
  11. NORITATE [Concomitant]
     Route: 065
  12. FLUTICASONE PROPIONATE [Concomitant]
     Route: 065

REACTIONS (2)
  - Joint injury [Not Recovered/Not Resolved]
  - Infection [Not Recovered/Not Resolved]
